FAERS Safety Report 9138775 (Version 1)
Quarter: 2013Q1

REPORT INFORMATION
  Report Type: Spontaneous
  Country: US (occurrence: US)
  Receive Date: 20130305
  Receipt Date: 20130305
  Transmission Date: 20140127
  Serious: Yes (Death)
  Sender: FDA-Public Use
  Company Number: US-ENDO PHARMACEUTICALS INC.-PERC20110001

PATIENT
  Age: 49 Year
  Sex: Female

DRUGS (12)
  1. PERCOCET-5 [Suspect]
     Indication: BACK PAIN
     Dosage: 5/325 MG
     Route: 048
  2. PERCOCET-5 [Suspect]
     Indication: MIGRAINE
  3. LEXAPRO [Suspect]
     Indication: DEPRESSION
     Route: 048
     Dates: start: 20100604
  4. SOMA [Suspect]
     Indication: BACK PAIN
     Route: 048
  5. SOMA [Suspect]
     Indication: MIGRAINE
  6. VALIUM [Suspect]
     Indication: PRODUCT USED FOR UNKNOWN INDICATION
     Dosage: UNK
  7. FENTORA [Suspect]
     Indication: BACK PAIN
     Route: 002
  8. FENTORA [Suspect]
     Indication: MIGRAINE
  9. FENTANYL [Suspect]
     Indication: BACK PAIN
     Dosage: UNK
     Route: 062
  10. FENTANYL [Suspect]
     Indication: MIGRAINE
  11. ZIPSOR [Suspect]
     Indication: BACK PAIN
     Dosage: 25 MG
     Route: 048
  12. ZIPSOR [Suspect]
     Indication: MIGRAINE

REACTIONS (3)
  - Cerebrovascular accident [None]
  - Drug abuse [Unknown]
  - Chest pain [Unknown]
